FAERS Safety Report 7609515-6 (Version None)
Quarter: 2011Q3

REPORT INFORMATION
  Report Type: 
  Country: None (occurrence: None)
  Receive Date: 20110714
  Receipt Date: 20110712
  Transmission Date: 20111222
  Serious: Yes (Death)
  Sender: FDA-Public Use
  Company Number: PHHY2011AU62225

PATIENT
  Age: 31 Year
  Sex: Male

DRUGS (4)
  1. METHAMPHETAMINE HYDROCHLORIDE [Interacting]
     Dosage: UNK
  2. METHYLENEDIOXYMETHAMPHETAMINE [Interacting]
     Dosage: UNK
  3. DIAZEPAM [Suspect]
     Dosage: UNK
  4. DOTHIEPIN [Interacting]
     Dosage: UNK

REACTIONS (2)
  - DROWNING [None]
  - DRUG INTERACTION [None]
